FAERS Safety Report 13844679 (Version 1)
Quarter: 2017Q3

REPORT INFORMATION
  Report Type: Spontaneous
  Country: US (occurrence: ZA)
  Receive Date: 20170808
  Receipt Date: 20170808
  Transmission Date: 20171127
  Serious: Yes (Hospitalization, Other)
  Sender: FDA-Public Use
  Company Number: US-AQUA PHARMACEUTICALS-2017AQU000236

PATIENT

DRUGS (8)
  1. SULFAMETHOXAZOLE AND TRIMETHOPRIM [Suspect]
     Active Substance: SULFAMETHOXAZOLE\TRIMETHOPRIM
  2. CYCLIZINE [Suspect]
     Active Substance: CYCLIZINE
  3. CHLORPHENIRAMINE MALEATE. [Suspect]
     Active Substance: CHLORPHENIRAMINE MALEATE
  4. GRISEOFULVIN. [Suspect]
     Active Substance: GRISEOFULVIN
  5. CLOXACILLIN [Suspect]
     Active Substance: CLOXACILLIN
  6. AMOXICILLIN/CLAVULANIC ACID [Suspect]
     Active Substance: AMOXICILLIN\CLAVULANIC ACID
  7. ALTABAX [Suspect]
     Active Substance: RETAPAMULIN
     Indication: RASH
  8. GOLDGESIC [Suspect]
     Active Substance: ACETAMINOPHEN\CODEINE PHOSPHATE\PROMETHAZINE HYDROCHLORIDE
     Indication: PRODUCT USED FOR UNKNOWN INDICATION

REACTIONS (2)
  - Linear IgA disease [Recovered/Resolved]
  - Erythema multiforme [Recovered/Resolved]
